FAERS Safety Report 19190629 (Version 1)
Quarter: 2021Q2

REPORT INFORMATION
  Report Type: Spontaneous
  Country: BR (occurrence: BR)
  Receive Date: 20210428
  Receipt Date: 20210428
  Transmission Date: 20210717
  Serious: Yes (Hospitalization, Other)
  Sender: FDA-Public Use
  Company Number: BR-TOPROL-2021000074

PATIENT
  Age: 66 Year
  Sex: Male

DRUGS (5)
  1. METOPROLOL SUCCINATE. [Suspect]
     Active Substance: METOPROLOL SUCCINATE
     Dosage: UNKNOWN
     Route: 048
  2. PEMETREXED. [Concomitant]
     Active Substance: PEMETREXED
  3. IMFINZI [Suspect]
     Active Substance: DURVALUMAB
     Dosage: Q2WK
     Route: 042
  4. METFORMIN [Concomitant]
     Active Substance: METFORMIN HYDROCHLORIDE
  5. CISPLATIN. [Concomitant]
     Active Substance: CISPLATIN

REACTIONS (3)
  - Pneumonitis [Recovered/Resolved]
  - Pulmonary embolism [Recovered/Resolved]
  - Pulmonary toxicity [Recovered/Resolved]
